FAERS Safety Report 8615861 (Version 2)
Quarter: 2012Q4

REPORT INFORMATION
  Report Type: 
  Country: US (occurrence: US)
  Receive Date: 20120614
  Receipt Date: 20120927
  Transmission Date: 20130627
  Serious: No
  Sender: FDA-Public Use
  Company Number: US-AMGEN-USASP2012030098

PATIENT
  Age: 80 Year
  Sex: Female

DRUGS (9)
  1. PROLIA [Suspect]
     Indication: OSTEOPOROSIS
     Dosage: 60 mg, qmo
     Route: 030
     Dates: start: 20120406
  2. ASPIRIN [Concomitant]
     Dosage: 1 mg, UNK
  3. MULTIVITAMIN                       /00097801/ [Concomitant]
     Dosage: UNK
  4. DETROL [Concomitant]
     Dosage: UNK
  5. TOPROL [Concomitant]
     Dosage: UNK
  6. BENICAR [Concomitant]
     Dosage: UNK
  7. ZOLOFT [Concomitant]
     Dosage: UNK
  8. CALCIUM [Concomitant]
     Dosage: UNK
  9. CYMBALTA [Concomitant]

REACTIONS (6)
  - Candidiasis [Recovered/Resolved]
  - Headache [Not Recovered/Not Resolved]
  - Joint crepitation [Not Recovered/Not Resolved]
  - Pain in jaw [Not Recovered/Not Resolved]
  - Mastication disorder [Unknown]
  - Scoliosis [Unknown]
